FAERS Safety Report 14043947 (Version 1)
Quarter: 2017Q4

REPORT INFORMATION
  Report Type: Spontaneous
  Country: US (occurrence: None)
  Receive Date: 20171004
  Receipt Date: 20171004
  Transmission Date: 20180321
  Serious: Yes (Hospitalization)
  Sender: FDA-Public Use
  Company Number: None

PATIENT
  Age: 10 Year
  Sex: Female
  Weight: 31.75 kg

DRUGS (1)
  1. LICE CLINICS OF AMERICA LICE REMOVER GEL [Suspect]
     Active Substance: DIMETHICONE

REACTIONS (4)
  - Urticaria [None]
  - Eye irritation [None]
  - Chemical burn [None]
  - Swelling face [None]

NARRATIVE: CASE EVENT DATE: 20171002
